FAERS Safety Report 11515923 (Version 2)
Quarter: 2016Q1

REPORT INFORMATION
  Report Type: Spontaneous
  Country: SE (occurrence: SE)
  Receive Date: 20150916
  Receipt Date: 20160115
  Transmission Date: 20160525
  Serious: Yes (Hospitalization, Other)
  Sender: FDA-Public Use
  Company Number: SE-BAXTER-2015BAX050268

PATIENT
  Sex: Male

DRUGS (9)
  1. PEDITRACE [Suspect]
     Active Substance: CUPRIC CHLORIDE\MANGANESE CHLORIDE\POTASSIUM IODIDE\SODIUM FLUORIDE\SODIUM SELENITE\ZINC CHLORIDE
     Indication: ORAL MUCOSAL BLISTERING
     Route: 042
     Dates: start: 20150907, end: 20150907
  2. VITALIPID INFANT [Suspect]
     Active Substance: ERGOCALCIFEROL\PHYTONADIONE\TOCOPHEROL\VITAMIN A PALMITATE
     Indication: ORAL MUCOSAL BLISTERING
     Route: 042
     Dates: start: 20150907, end: 20150907
  3. NUMETA G19E, INFUSIONSV?TSKA, EMULSION [Suspect]
     Active Substance: AMINO ACIDS\DEXTROSE\ELECTROLYTES NOS\SOYBEAN OIL
     Indication: HYPOPHAGIA
  4. SOLUVIT [Suspect]
     Active Substance: VITAMINS
     Indication: ORAL MUCOSAL BLISTERING
     Route: 042
     Dates: start: 20150907, end: 20150907
  5. STERILT VATTEN BAXTER VIAFLO [Suspect]
     Active Substance: WATER
     Indication: MEDICATION DILUTION
     Route: 042
     Dates: start: 20150907, end: 20150907
  6. PEDITRACE [Suspect]
     Active Substance: CUPRIC CHLORIDE\MANGANESE CHLORIDE\POTASSIUM IODIDE\SODIUM FLUORIDE\SODIUM SELENITE\ZINC CHLORIDE
     Indication: HYPOPHAGIA
  7. VITALIPID INFANT [Suspect]
     Active Substance: ERGOCALCIFEROL\PHYTONADIONE\TOCOPHEROL\VITAMIN A PALMITATE
     Indication: HYPOPHAGIA
  8. NUMETA G19E, INFUSIONSV?TSKA, EMULSION [Suspect]
     Active Substance: AMINO ACIDS\DEXTROSE\ELECTROLYTES NOS\SOYBEAN OIL
     Indication: ORAL MUCOSAL BLISTERING
     Route: 042
     Dates: start: 20150907, end: 20150907
  9. SOLUVIT [Suspect]
     Active Substance: VITAMINS
     Indication: HYPOPHAGIA

REACTIONS (4)
  - Documented hypersensitivity to administered product [Unknown]
  - Hypersensitivity [Recovering/Resolving]
  - Eczema [Unknown]
  - Bradycardia [Not Recovered/Not Resolved]

NARRATIVE: CASE EVENT DATE: 20150907
